FAERS Safety Report 4304919-1 (Version None)
Quarter: 2004Q1

REPORT INFORMATION
  Report Type: 
  Country: None (occurrence: None)
  Receive Date: 20040226
  Receipt Date: 20040113
  Transmission Date: 20041129
  Serious: No
  Sender: FDA-Public Use
  Company Number: US-GLAXOSMITHKLINE-A0492900A

PATIENT
  Age: 60 Year
  Sex: Male

DRUGS (5)
  1. WELLBUTRIN XL [Suspect]
     Dosage: 150MG PER DAY
     Route: 048
     Dates: start: 20040104
  2. PLAVIX [Concomitant]
  3. LOPRESSOR [Concomitant]
  4. PRAVACHOL [Concomitant]
  5. ATIVAN [Concomitant]

REACTIONS (1)
  - EUPHORIC MOOD [None]
